FAERS Safety Report 9306338 (Version 1)
Quarter: 2013Q2

REPORT INFORMATION
  Report Type: Spontaneous
  Country: US (occurrence: US)
  Receive Date: 20130523
  Receipt Date: 20130523
  Transmission Date: 20140414
  Serious: No
  Sender: FDA-Public Use
  Company Number: US-ASTRAZENECA-2013SE32722

PATIENT
  Age: 7 Year
  Sex: Female
  Weight: 36.3 kg

DRUGS (1)
  1. NEXIUM [Suspect]
     Indication: ABDOMINAL PAIN
     Route: 048
     Dates: start: 201304, end: 20130502

REACTIONS (4)
  - Abdominal pain [Unknown]
  - Intentional drug misuse [Unknown]
  - Therapeutic response unexpected [Unknown]
  - Drug dose omission [Unknown]
